FAERS Safety Report 24077810 (Version 1)
Quarter: 2024Q3

REPORT INFORMATION
  Report Type: Spontaneous
  Country: US (occurrence: US)
  Receive Date: 20240711
  Receipt Date: 20240711
  Transmission Date: 20241016
  Serious: No
  Sender: PIERRE FABRE MEDICAMENT
  Company Number: US-PFM-2023-02644

PATIENT
  Sex: Male
  Weight: 8.091 kg

DRUGS (1)
  1. HEMANGEOL [Suspect]
     Active Substance: PROPRANOLOL HYDROCHLORIDE
     Indication: Haemangioma
     Dosage: 5.5 ML, (3 ML EVERY MORNING AND 2.5 ML EVERY EVENING)
     Route: 048

REACTIONS (3)
  - Illness [Recovering/Resolving]
  - Product use issue [Unknown]
  - Off label use [Unknown]
